FAERS Safety Report 8031494-0 (Version None)
Quarter: 2011Q4

REPORT INFORMATION
  Report Type: 
  Country: None (occurrence: None)
  Receive Date: 20111201
  Receipt Date: 20101027
  Transmission Date: 20120403
  Serious: Yes (Other)
  Sender: FDA-Public Use
  Company Number: 253189USA

PATIENT
  Age: 59 Year
  Sex: Female

DRUGS (3)
  1. ESTROGENS CONJUGATED [Suspect]
     Dates: start: 19960101, end: 20000101
  2. ESTRADIOL [Suspect]
     Dates: start: 20060101, end: 20080101
  3. ESTROGENS CONJUGATED [Suspect]
     Dates: start: 20000101, end: 20050101

REACTIONS (1)
  - BREAST CANCER [None]
